FAERS Safety Report 22844274 (Version 2)
Quarter: 2023Q4

REPORT INFORMATION
  Report Type: Report from Study
  Country: MX (occurrence: MX)
  Receive Date: 20230821
  Receipt Date: 20231101
  Transmission Date: 20240109
  Serious: Yes (Other)
  Sender: FDA-Public Use
  Company Number: MX-002147023-NVSC2023MX180814

PATIENT
  Sex: Female

DRUGS (1)
  1. KISQALI [Suspect]
     Active Substance: RIBOCICLIB
     Indication: Breast cancer
     Dosage: UNK
     Route: 048

REACTIONS (9)
  - Second primary malignancy [Unknown]
  - Lung neoplasm malignant [Unknown]
  - Metastases to central nervous system [Unknown]
  - Noninfective encephalitis [Unknown]
  - Headache [Unknown]
  - Inflammation [Unknown]
  - Dizziness [Unknown]
  - Feeling abnormal [Unknown]
  - Malaise [Unknown]
